FAERS Safety Report 5083490-3 (Version None)
Quarter: 2006Q3

REPORT INFORMATION
  Report Type: 
  Country: None (occurrence: None)
  Receive Date: 20060818
  Receipt Date: 20060809
  Transmission Date: 20061208
  Serious: Yes (Hospitalization)
  Sender: FDA-Public Use
  Company Number: 2006UW15904

PATIENT
  Age: 16749 Day
  Sex: Male
  Weight: 100.5 kg

DRUGS (23)
  1. CRESTOR [Suspect]
     Indication: HYPERLIPIDAEMIA
     Route: 048
  2. ASPIRIN [Concomitant]
     Indication: ANTICOAGULANT THERAPY
  3. NITROSTAT [Concomitant]
     Route: 060
  4. NORVASC [Concomitant]
     Indication: ANGINA PECTORIS
  5. MONOPRIL [Concomitant]
     Indication: BLOOD PRESSURE
  6. TOPROL-XL [Concomitant]
     Indication: CARDIAC DISORDER
  7. ALLEGRA [Concomitant]
  8. PREVACID [Concomitant]
  9. PLAVIX [Concomitant]
     Indication: ANTICOAGULANT THERAPY
  10. XANAX [Concomitant]
  11. EFFEXOR [Concomitant]
     Indication: AFFECTIVE DISORDER
  12. OXYCONTIN [Concomitant]
  13. OXYCONTIN IR [Concomitant]
  14. RESTORIL [Concomitant]
  15. SYNTHROID [Concomitant]
     Indication: THYROID DISORDER
  16. COZAAR [Concomitant]
  17. DYAZIDE [Concomitant]
     Indication: BLOOD PRESSURE
     Dosage: 375/25
  18. PROMETHAZINE [Concomitant]
  19. PHENERGAN HCL [Concomitant]
  20. OXYIR [Concomitant]
  21. ZANTAC [Concomitant]
  22. BENADRYL [Concomitant]
  23. THYROID TAB [Concomitant]

REACTIONS (7)
  - ANGINA UNSTABLE [None]
  - CHEST PAIN [None]
  - CORONARY ARTERY DISEASE [None]
  - HYPOTENSION [None]
  - RENAL FAILURE ACUTE [None]
  - RHABDOMYOLYSIS [None]
  - STRUCK BY LIGHTNING [None]
